FAERS Safety Report 17800364 (Version 1)
Quarter: 2020Q2

REPORT INFORMATION
  Report Type: Spontaneous
  Country: DE (occurrence: DE)
  Receive Date: 20200519
  Receipt Date: 20200519
  Transmission Date: 20200714
  Serious: Yes (Life-Threatening, Hospitalization, Other)
  Sender: FDA-Public Use
  Company Number: DE-AUROBINDO-AUR-APL-2020-024450

PATIENT
  Age: 58 Year
  Sex: Female

DRUGS (22)
  1. LACOSAMIDE. [Suspect]
     Active Substance: LACOSAMIDE
     Indication: STATUS EPILEPTICUS
     Dosage: UNK ()INITIAL LOADING DOSE)
     Route: 065
  2. AMPHOTERICIN B. [Concomitant]
     Active Substance: AMPHOTERICIN B
     Indication: PROPHYLAXIS
     Dosage: UNK
     Route: 055
  3. TACROLIMUS. [Concomitant]
     Active Substance: TACROLIMUS
     Dosage: 4 MILLIGRAM, ONCE A DAY
     Route: 042
  4. SULFAMETHOXAZOLE;TRIMETHOPRIM [Concomitant]
     Active Substance: SULFAMETHOXAZOLE\TRIMETHOPRIM
     Indication: PROPHYLAXIS
     Dosage: UNK (TWICE A WEEK)
     Route: 048
  5. PREDNISOLONE. [Concomitant]
     Active Substance: PREDNISOLONE
     Indication: INTERSTITIAL LUNG DISEASE
     Dosage: 5 MILLIGRAM, ONCE A DAY
     Route: 065
  6. MIDAZOLAM. [Suspect]
     Active Substance: MIDAZOLAM
     Indication: STATUS EPILEPTICUS
     Dosage: UNK
     Route: 065
  7. SEVOFLURANE. [Suspect]
     Active Substance: SEVOFLURANE
     Indication: STATUS EPILEPTICUS
     Dosage: UNK
     Route: 065
  8. TACROLIMUS. [Concomitant]
     Active Substance: TACROLIMUS
     Dosage: 8 MILLIGRAM, ONCE A DAY
     Route: 042
  9. TACROLIMUS. [Concomitant]
     Active Substance: TACROLIMUS
     Dosage: 6 MILLIGRAM, ONCE A DAY
     Route: 042
  10. PROPOFOL. [Suspect]
     Active Substance: PROPOFOL
     Indication: STATUS EPILEPTICUS
     Dosage: CONTINUAL APPLICATION
     Route: 065
  11. TACROLIMUS. [Concomitant]
     Active Substance: TACROLIMUS
     Indication: IMMUNOSUPPRESSANT DRUG THERAPY
     Dosage: 0.48 MILLIGRAM, ONCE A DAY
     Route: 042
  12. LORAZEPAM. [Suspect]
     Active Substance: LORAZEPAM
     Indication: STATUS EPILEPTICUS
     Dosage: UNK
     Route: 065
  13. TACROLIMUS. [Concomitant]
     Active Substance: TACROLIMUS
     Dosage: 1 MILLIGRAM, ONCE A DAY
     Route: 042
  14. TACROLIMUS. [Concomitant]
     Active Substance: TACROLIMUS
     Dosage: 2 MILLIGRAM, ONCE A DAY
     Route: 042
  15. METHYLPREDNISOLONE. [Concomitant]
     Active Substance: METHYLPREDNISOLONE
     Indication: IMMUNOSUPPRESSANT DRUG THERAPY
     Dosage: UNK
     Route: 065
  16. PREDNISONE. [Concomitant]
     Active Substance: PREDNISONE
     Indication: IMMUNOSUPPRESSANT DRUG THERAPY
     Dosage: UNK
     Route: 065
  17. TACROLIMUS. [Concomitant]
     Active Substance: TACROLIMUS
     Dosage: 5 MILLIGRAM, ONCE A DAY
     Route: 042
  18. DOBUTAMINE [Concomitant]
     Active Substance: DOBUTAMINE HYDROCHLORIDE
     Indication: CARDIAC DISORDER
     Dosage: UNK
     Route: 065
  19. LEVETIRACETAM. [Suspect]
     Active Substance: LEVETIRACETAM
     Indication: STATUS EPILEPTICUS
     Dosage: UNK (INITIAL LOADING DOSE)
     Route: 065
  20. TACROLIMUS. [Concomitant]
     Active Substance: TACROLIMUS
     Dosage: 0.72 MILLIGRAM, ONCE A DAY
     Route: 042
  21. TACROLIMUS. [Concomitant]
     Active Substance: TACROLIMUS
     Dosage: 0.96 MILLIGRAM, ONCE A DAY
     Route: 042
  22. GANCICLOVIR. [Concomitant]
     Active Substance: GANCICLOVIR
     Indication: PROPHYLAXIS
     Dosage: UNK
     Route: 065

REACTIONS (1)
  - Drug ineffective [Recovering/Resolving]
